FAERS Safety Report 4430469-8 (Version None)
Quarter: 2004Q3

REPORT INFORMATION
  Report Type: 
  Country: None (occurrence: None)
  Receive Date: 20040721
  Receipt Date: 20040507
  Transmission Date: 20050211
  Serious: Yes (Life-Threatening, Hospitalization)
  Sender: FDA-Public Use
  Company Number: WAES 0405USA00539

PATIENT
  Age: 70 Year
  Sex: Male

DRUGS (2)
  1. VIOXX [Suspect]
     Indication: PELVIC PAIN
     Dosage: 12.5 MG/DAILY/PO; 12.4 MG/BID/PO
     Route: 048
     Dates: start: 20040401, end: 20040410
  2. VIOXX [Suspect]
     Indication: PELVIC PAIN
     Dosage: 12.5 MG/DAILY/PO; 12.4 MG/BID/PO
     Route: 048
     Dates: start: 20040411, end: 20040412

REACTIONS (1)
  - THROMBOCYTOPENIA [None]
